FAERS Safety Report 6751575-9 (Version None)
Quarter: 2010Q2

REPORT INFORMATION
  Report Type: 
  Country: None (occurrence: None)
  Receive Date: 20100526
  Receipt Date: 20100301
  Transmission Date: 20101027
  Serious: Yes (Hospitalization)
  Sender: FDA-Public Use
  Company Number: 304976

PATIENT
  Sex: Female

DRUGS (1)
  1. VICTOZA [Suspect]
     Indication: DIABETES MELLITUS
     Dosage: 0.6 MG. QD X 7 SUBCUTANEOUS; 1.2 MG, QD X 2DAYS, SUBCUTANEOUS
     Route: 058
     Dates: start: 20100201, end: 20100201

REACTIONS (3)
  - DIARRHOEA [None]
  - NAUSEA [None]
  - PANCREATITIS ACUTE [None]
